FAERS Safety Report 23786555 (Version 2)
Quarter: 2024Q2

REPORT INFORMATION
  Report Type: Spontaneous
  Country: GR (occurrence: GR)
  Receive Date: 20240426
  Receipt Date: 20240615
  Transmission Date: 20240716
  Serious: Yes (Other)
  Sender: FDA-Public Use
  Company Number: GR-JNJFOC-20240464864

PATIENT
  Age: 91 Year
  Sex: Female

DRUGS (2)
  1. IMBRUVICA [Suspect]
     Active Substance: IBRUTINIB
     Indication: Chronic lymphocytic leukaemia
     Dosage: LAST ADIMINSTRATION WAS 2024
     Route: 048
     Dates: start: 20240216
  2. IMBRUVICA [Suspect]
     Active Substance: IBRUTINIB
     Indication: Chronic lymphocytic leukaemia
     Dosage: DOSE INCREASED?FIRST ADMIN DATE: 2024,
     Route: 048
     Dates: end: 20240418

REACTIONS (6)
  - Tumour lysis syndrome [Unknown]
  - Drug ineffective [Unknown]
  - Off label use [Unknown]
  - Renal impairment [Unknown]
  - Hypertension [Unknown]
  - Venous thrombosis [Unknown]

NARRATIVE: CASE EVENT DATE: 20240216
